FAERS Safety Report 12904834 (Version 3)
Quarter: 2017Q1

REPORT INFORMATION
  Report Type: Spontaneous
  Country: US (occurrence: US)
  Receive Date: 20161102
  Receipt Date: 20170111
  Transmission Date: 20170428
  Serious: No
  Sender: FDA-Public Use
  Company Number: US-ACTELION-A-NJ2016-144819

PATIENT
  Age: 55 Year
  Sex: Female

DRUGS (11)
  1. POTASSIUM [Concomitant]
     Active Substance: POTASSIUM
  2. LEVOTHYROXINE. [Concomitant]
     Active Substance: LEVOTHYROXINE
  3. OXYCODONE [Concomitant]
     Active Substance: OXYCODONE
  4. OPSUMIT [Suspect]
     Active Substance: MACITENTAN
     Indication: PULMONARY ARTERIAL HYPERTENSION
     Dosage: 10 MG, QD
     Route: 048
     Dates: start: 20151112
  5. UPTRAVI [Suspect]
     Active Substance: SELEXIPAG
     Indication: PULMONARY ARTERIAL HYPERTENSION
     Dosage: 800 MCG, BID
     Route: 048
     Dates: start: 20161222, end: 20161229
  6. UPTRAVI [Suspect]
     Active Substance: SELEXIPAG
     Dosage: 400 MCG, BID
     Route: 048
     Dates: start: 20161025
  7. UPTRAVI [Suspect]
     Active Substance: SELEXIPAG
     Dosage: 600 MCG, BID
     Route: 048
     Dates: start: 20161229
  8. SILDENAFIL. [Concomitant]
     Active Substance: SILDENAFIL
  9. XARELTO [Concomitant]
     Active Substance: RIVAROXABAN
  10. ASPIRIN. [Concomitant]
     Active Substance: ASPIRIN
  11. UPTRAVI [Suspect]
     Active Substance: SELEXIPAG
     Dosage: 200 MCG, BID
     Route: 048
     Dates: start: 20161017, end: 20161115

REACTIONS (8)
  - Dyspnoea [Recovered/Resolved]
  - Bone pain [Not Recovered/Not Resolved]
  - Fatigue [Not Recovered/Not Resolved]
  - Dizziness [Not Recovered/Not Resolved]
  - Myalgia [Recovered/Resolved]
  - Nausea [Not Recovered/Not Resolved]
  - Epistaxis [Unknown]
  - Pain [Unknown]

NARRATIVE: CASE EVENT DATE: 20161025
